FAERS Safety Report 8838490 (Version 5)
Quarter: 2015Q2

REPORT INFORMATION
  Report Type: Report from Study
  Country: DE (occurrence: DE)
  Receive Date: 20121012
  Receipt Date: 20150423
  Transmission Date: 20150821
  Serious: Yes (Hospitalization)
  Sender: FDA-Public Use
  Company Number: DE-ROCHE-1142828

PATIENT
  Age: 45 Year
  Sex: Male
  Weight: 121.7 kg

DRUGS (3)
  1. ADVANTAN [Concomitant]
     Active Substance: CORTICOSTEROID NOS
     Dosage: 1 APPLICATION PER DAY
     Route: 065
     Dates: start: 20120214
  2. IBUPROFEN. [Concomitant]
     Active Substance: IBUPROFEN
     Dosage: AS NEEDED/ MG
     Route: 065
     Dates: start: 20120805
  3. VEMURAFENIB [Suspect]
     Active Substance: VEMURAFENIB
     Indication: METASTATIC MALIGNANT MELANOMA
     Dosage: LAST DOSE PROIR TO SAE: 03/OCT/2012
     Route: 048
     Dates: start: 20120118

REACTIONS (1)
  - Dermal cyst [Recovered/Resolved]

NARRATIVE: CASE EVENT DATE: 20120703
